FAERS Safety Report 11420233 (Version 1)
Quarter: 2015Q3

REPORT INFORMATION
  Report Type: Spontaneous
  Country: US (occurrence: US)
  Receive Date: 20150826
  Receipt Date: 20150826
  Transmission Date: 20151125
  Serious: No
  Sender: FDA-Public Use
  Company Number: US-BAYER-2015-408554

PATIENT
  Age: 3 Year
  Sex: Male
  Weight: 18.14 kg

DRUGS (1)
  1. ALEVE [Suspect]
     Active Substance: NAPROXEN SODIUM
     Dosage: 1-2 DF, ONCE
     Route: 048
     Dates: start: 20150824, end: 20150824

REACTIONS (1)
  - Accidental exposure to product by child [None]

NARRATIVE: CASE EVENT DATE: 20150824
